FAERS Safety Report 8760174 (Version 1)
Quarter: 2012Q4

REPORT INFORMATION
  Report Type: 
  Country: US (occurrence: US)
  Receive Date: 20120829
  Receipt Date: 20120829
  Transmission Date: 20130627
  Serious: Yes (Other)
  Sender: FDA-Public Use
  Company Number: CHPA2012US018572

PATIENT
  Age: 54 Year
  Sex: Female

DRUGS (2)
  1. EXCEDRIN EXTRA STRENGTH [Suspect]
     Indication: HEADACHE
     Dosage: 1 DF, QD PRN
     Route: 048
  2. METAMUCIL [Concomitant]
     Dosage: Unk, Unk

REACTIONS (4)
  - Sjogren^s syndrome [Unknown]
  - Aptyalism [Not Recovered/Not Resolved]
  - Hypothyroidism [Unknown]
  - Underdose [Unknown]
